FAERS Safety Report 9470113 (Version 2)
Quarter: 2013Q3

REPORT INFORMATION
  Report Type: Spontaneous
  Country: US (occurrence: US)
  Receive Date: 20130822
  Receipt Date: 20130822
  Transmission Date: 20140515
  Serious: Yes (Other)
  Sender: FDA-Public Use
  Company Number: US-MYLANLABS-2013S1010619

PATIENT
  Age: 70 Year
  Sex: Male
  Weight: 117.94 kg

DRUGS (22)
  1. TRANEXAMIC ACID [Suspect]
     Indication: POST PROCEDURAL HAEMORRHAGE
     Dosage: THEN 8MG/KG?ONE TIME ONLY INFUSION
     Route: 042
     Dates: start: 20130506, end: 20130508
  2. TRANEXAMIC ACID [Suspect]
     Indication: HAEMORRHAGE PROPHYLAXIS
     Dosage: THEN 8MG/KG?ONE TIME ONLY INFUSION
     Route: 042
     Dates: start: 20130506, end: 20130508
  3. ALPRAZOLAM [Concomitant]
     Route: 048
  4. ATENOLOL [Concomitant]
     Route: 048
  5. DILTIAZEM [Concomitant]
     Route: 048
  6. VYTORIN [Concomitant]
     Route: 048
  7. FUROSEMIDE [Concomitant]
     Route: 048
  8. POTASSIUM [Concomitant]
     Route: 048
  9. OXYCODONE [Concomitant]
     Route: 048
  10. ASPIRIN (E.C.) [Concomitant]
  11. REFRESH /00880201/ [Concomitant]
     Route: 047
  12. COMBIGAN [Concomitant]
  13. RESTASIS [Concomitant]
  14. TRUSOPT [Concomitant]
  15. DOXYCYCLINE [Concomitant]
  16. CENTRUM SILVER [Concomitant]
  17. NICOTROL [Concomitant]
     Route: 055
  18. PILOCARPINE [Concomitant]
  19. SYSTANE [Concomitant]
  20. SPIRIVA [Concomitant]
  21. ZIOPTAN [Concomitant]
  22. PROPOFOL [Concomitant]
     Dates: start: 20130506, end: 20130506

REACTIONS (1)
  - Grand mal convulsion [Recovered/Resolved with Sequelae]
